FAERS Safety Report 21534062 (Version 1)
Quarter: 2022Q4

REPORT INFORMATION
  Report Type: Spontaneous
  Country: US (occurrence: US)
  Receive Date: 20221101
  Receipt Date: 20221101
  Transmission Date: 20230112
  Serious: No
  Sender: FDA-Public Use
  Company Number: US-PARATEK PHARMACEUTICALS, INC.-2022PTK00301

PATIENT
  Sex: Female

DRUGS (1)
  1. NUZYRA [Suspect]
     Active Substance: OMADACYCLINE
     Indication: Atypical mycobacterial infection
     Dosage: UNK
     Dates: start: 2022

REACTIONS (2)
  - Skin discolouration [Not Recovered/Not Resolved]
  - Off label use [Unknown]

NARRATIVE: CASE EVENT DATE: 20220101
